FAERS Safety Report 23830406 (Version 1)
Quarter: 2024Q2

REPORT INFORMATION
  Report Type: Spontaneous
  Country: CZ (occurrence: CZ)
  Receive Date: 20240508
  Receipt Date: 20240508
  Transmission Date: 20240716
  Serious: Yes (Other)
  Sender: FDA-Public Use
  Company Number: None

PATIENT

DRUGS (2)
  1. DESMOPRESSIN ACETATE [Suspect]
     Active Substance: DESMOPRESSIN ACETATE
     Indication: Product used for unknown indication
     Dosage: 120 UG
     Route: 048
     Dates: start: 202110, end: 202310
  2. GERATAM [Concomitant]
     Indication: Supportive care
     Dosage: 1200 MG
     Route: 048

REACTIONS (3)
  - Self-destructive behaviour [Unknown]
  - Suicidal ideation [Unknown]
  - Depression [Recovered/Resolved]
